FAERS Safety Report 5848063-0 (Version None)
Quarter: 2008Q3

REPORT INFORMATION
  Report Type: 
  Country: None (occurrence: None)
  Receive Date: 20080815
  Receipt Date: 20080815
  Transmission Date: 20090109
  Serious: Yes (Other)
  Sender: FDA-Public Use
  Company Number: None

PATIENT
  Age: 72 Year
  Sex: Male
  Weight: 95.2554 kg

DRUGS (11)
  1. DILANTIN [Suspect]
     Indication: CONVULSION
     Dosage: 300 MG 6-25-08 INCREASING TO 500MG 7-9-08
  2. ALFALA [Concomitant]
  3. BCAROTENE [Concomitant]
  4. DIPHENYLHYDRAMINE HCL [Concomitant]
  5. DYAZIDE [Concomitant]
  6. NORVASC [Concomitant]
  7. SELENIUM [Concomitant]
  8. VASOTEC [Concomitant]
  9. VIT C [Concomitant]
  10. VIT E [Concomitant]
  11. WARFARIN SODIUM [Concomitant]

REACTIONS (8)
  - ARTHRALGIA [None]
  - BALANCE DISORDER [None]
  - CLUMSINESS [None]
  - DIARRHOEA [None]
  - DYSPNOEA [None]
  - LIP SWELLING [None]
  - PHOTOSENSITIVITY REACTION [None]
  - RASH PRURITIC [None]
